FAERS Safety Report 11641229 (Version 16)
Quarter: 2017Q1

REPORT INFORMATION
  Report Type: Spontaneous
  Country: HU (occurrence: HU)
  Receive Date: 20151019
  Receipt Date: 20170124
  Transmission Date: 20170428
  Serious: Yes (Hospitalization, Other)
  Sender: FDA-Public Use
  Company Number: HU-PFIZER INC-2015336055

PATIENT
  Age: 73 Year
  Sex: Female

DRUGS (5)
  1. SUTENT [Suspect]
     Active Substance: SUNITINIB MALATE
     Dosage: 50 MG, ONCE DAILY CYCLIC (ACCORDING TO THE 2/1 SCHEMA)
     Route: 048
     Dates: start: 20151102
  2. SUTENT [Suspect]
     Active Substance: SUNITINIB MALATE
     Indication: RENAL CANCER
     Dosage: 50 MG, ONCE DAILY CYCLIC (ACCORDING TO 4/2 SCHEMA)
     Route: 048
     Dates: start: 20150921, end: 20151004
  3. SUTENT [Suspect]
     Active Substance: SUNITINIB MALATE
     Dosage: 50 MG, ONCE DAILY CYCLIC (ACCORDING TO THE 2/1 SCHEMA)
     Route: 048
     Dates: start: 20160215, end: 20160320
  4. SUTENT [Suspect]
     Active Substance: SUNITINIB MALATE
     Dosage: 50 MG, ONCE DAILY CYCLIC (ACCORDING TO THE 2/1 SCHEMA)
     Route: 048
     Dates: end: 20170101
  5. SUTENT [Suspect]
     Active Substance: SUNITINIB MALATE
     Dosage: 50 MG, ONCE DAILY CYCLIC (ACCORDING TO THE 2/1 SCHEMA)
     Route: 048
     Dates: end: 20160904

REACTIONS (20)
  - Blood pressure fluctuation [Recovered/Resolved]
  - Haematemesis [Recovered/Resolved]
  - Pain in extremity [Unknown]
  - Anal incontinence [Recovered/Resolved]
  - Asthenia [Not Recovered/Not Resolved]
  - Fatigue [Not Recovered/Not Resolved]
  - Abdominal pain upper [Unknown]
  - Palmar-plantar erythrodysaesthesia syndrome [Unknown]
  - Alopecia [Unknown]
  - Vomiting [Unknown]
  - Yellow skin [Unknown]
  - Blood sodium decreased [Not Recovered/Not Resolved]
  - Nausea [Recovered/Resolved]
  - Neoplasm progression [Unknown]
  - Heart rate decreased [Recovered/Resolved]
  - Anaemia [Recovered/Resolved]
  - Noninfective gingivitis [Recovered/Resolved]
  - Diarrhoea [Recovered/Resolved]
  - Gingival pain [Recovered/Resolved]
  - Pruritus [Unknown]

NARRATIVE: CASE EVENT DATE: 20150925
